FAERS Safety Report 10005259 (Version 1)
Quarter: 2014Q1

REPORT INFORMATION
  Report Type: Report from Study
  Country: BR (occurrence: BR)
  Receive Date: 20140312
  Receipt Date: 20140312
  Transmission Date: 20141002
  Serious: Yes (Hospitalization, Other)
  Sender: FDA-Public Use
  Company Number: PHHY2014BR029413

PATIENT
  Age: 35 Year
  Sex: Female
  Weight: 73 kg

DRUGS (5)
  1. GILENYA [Suspect]
     Indication: MULTIPLE SCLEROSIS
     Dosage: 1 DF, QD
     Route: 048
     Dates: end: 201308
  2. SERTRALINE [Concomitant]
     Indication: DEPRESSION
     Dosage: 4 DF, DAILY
     Route: 048
  3. CLONAZEPAM [Concomitant]
     Indication: DEPRESSION
     Dosage: 1 DF, DAILY
     Route: 048
  4. TRYPTANOL                               /BRA/ [Concomitant]
     Indication: DEPRESSION
     Dosage: 2 DF, DAILY
     Route: 048
  5. HALDOL [Concomitant]
     Indication: DEPRESSION
     Dosage: 1 DF, DAILY
     Route: 048

REACTIONS (8)
  - Sensory loss [Recovered/Resolved]
  - Musculoskeletal stiffness [Recovered/Resolved]
  - Dysstasia [Recovered/Resolved]
  - Uterine leiomyoma [Recovered/Resolved]
  - Menorrhagia [Not Recovered/Not Resolved]
  - Depression [Recovered/Resolved]
  - Confusional state [Unknown]
  - Irritability [Unknown]
